FAERS Safety Report 13500730 (Version 1)
Quarter: 2017Q2

REPORT INFORMATION
  Report Type: Spontaneous
  Country: US (occurrence: US)
  Receive Date: 20170501
  Receipt Date: 20170501
  Transmission Date: 20170830
  Serious: No
  Sender: FDA-Public Use
  Company Number: US-ACTELION-A-US2017-153021

PATIENT
  Age: 65 Year
  Sex: Female

DRUGS (6)
  1. OMEPRAZOLE. [Concomitant]
     Active Substance: OMEPRAZOLE
  2. VALCHLOR [Suspect]
     Active Substance: MECHLORETHAMINE
     Indication: MYCOSIS FUNGOIDES
     Dosage: UNK
     Route: 061
     Dates: start: 20170203
  3. ZOCOR [Concomitant]
     Active Substance: SIMVASTATIN
  4. MULTIVITAMIN [Concomitant]
     Active Substance: VITAMINS
  5. COLECALCIFEROL W/FISH OIL [Concomitant]
  6. HALOBETASOL [Concomitant]
     Active Substance: HALOBETASOL PROPIONATE

REACTIONS (1)
  - Arthralgia [Unknown]
